FAERS Safety Report 8547971-X (Version None)
Quarter: 2012Q3

REPORT INFORMATION
  Report Type: 
  Country: None (occurrence: None)
  Receive Date: 20120729
  Receipt Date: 20120718
  Transmission Date: 20120928
  Serious: Yes (Disabling, Other)
  Sender: FDA-Public Use
  Company Number: GB-009507513-1207GBR006884

PATIENT

DRUGS (1)
  1. ONCOTICE [Suspect]
     Indication: PROPHYLAXIS
     Route: 051
     Dates: start: 20110301, end: 20110301

REACTIONS (3)
  - PAIN [None]
  - SCAR [None]
  - SKIN LESION [None]
